FAERS Safety Report 15386095 (Version 3)
Quarter: 2018Q4

REPORT INFORMATION
  Report Type: Report from Study
  Country: JP (occurrence: JP)
  Receive Date: 20180914
  Receipt Date: 20181027
  Transmission Date: 20190204
  Serious: No
  Sender: FDA-Public Use
  Company Number: JP-ACTELION-A-CH2018-175681

PATIENT
  Age: 59 Year
  Sex: Female

DRUGS (17)
  1. ADALAT [Concomitant]
     Active Substance: NIFEDIPINE
  2. FIBLAST [Concomitant]
  3. VOLTAREN [Concomitant]
     Active Substance: DICLOFENAC SODIUM
  4. PURSENNIDE [Concomitant]
  5. JUVELA N [Concomitant]
     Active Substance: TOCOPHERYL NICOTINATE, D-.ALPHA.
  6. NAUZELIN [Concomitant]
     Active Substance: DOMPERIDONE
  7. HOCHUEKKITO [Concomitant]
     Active Substance: HERBALS
  8. MAGMITT [Concomitant]
     Active Substance: MAGNESIUM OXIDE
  9. PREDONINE [Suspect]
     Active Substance: PREDNISOLONE
     Indication: SYSTEMIC SCLERODERMA
     Dosage: 5 MG, QD
     Route: 048
     Dates: start: 20090226
  10. BAYASPIRIN [Suspect]
     Active Substance: ASPIRIN
     Indication: SYSTEMIC SCLERODERMA
     Dosage: 100 MG, QD
     Route: 048
     Dates: start: 20121110
  11. BONOTEO [Concomitant]
     Active Substance: MINODRONIC ACID
  12. LUNESTA [Concomitant]
     Active Substance: ESZOPICLONE
  13. JZOLOFT [Concomitant]
     Active Substance: SERTRALINE HYDROCHLORIDE
  14. TRACLEER [Suspect]
     Active Substance: BOSENTAN
     Indication: SCLERODERMA ASSOCIATED DIGITAL ULCER
     Dosage: 62.5 MG, BID
     Route: 048
     Dates: start: 20170719
  15. PARIET [Concomitant]
     Active Substance: RABEPRAZOLE SODIUM
     Dosage: 10 MG, QD
  16. PARIET [Concomitant]
     Active Substance: RABEPRAZOLE SODIUM
     Dosage: 20 MG, QD
  17. TRAMCET [Concomitant]
     Active Substance: ACETAMINOPHEN\TRAMADOL

REACTIONS (9)
  - Aspartate aminotransferase increased [Recovering/Resolving]
  - Occult blood positive [Recovering/Resolving]
  - Alanine aminotransferase increased [Recovering/Resolving]
  - Vasodilation procedure [Unknown]
  - Blood alkaline phosphatase increased [Recovering/Resolving]
  - Iron deficiency anaemia [Recovering/Resolving]
  - Duodenal ulcer [Unknown]
  - Hepatic function abnormal [Recovering/Resolving]
  - Gamma-glutamyltransferase increased [Recovering/Resolving]

NARRATIVE: CASE EVENT DATE: 20170920
